FAERS Safety Report 7114379-3 (Version None)
Quarter: 2010Q4

REPORT INFORMATION
  Report Type: 
  Country: None (occurrence: None)
  Receive Date: 20101119
  Receipt Date: 20101105
  Transmission Date: 20110411
  Serious: Yes (Hospitalization)
  Sender: FDA-Public Use
  Company Number: PHHY2010GR71873

PATIENT
  Sex: Male

DRUGS (4)
  1. RASILEZ HCT [Suspect]
     Indication: HYPERTENSION
     Dosage: 300/12.5 MG
  2. RASILEZ HCT [Suspect]
     Dosage: 150/12.5 MG
  3. LIPITOR [Concomitant]
  4. CARVEPEN [Concomitant]

REACTIONS (1)
  - ARRHYTHMIA [None]
